FAERS Safety Report 19448005 (Version 1)
Quarter: 2021Q2

REPORT INFORMATION
  Report Type: Spontaneous
  Country: US (occurrence: US)
  Receive Date: 20210622
  Receipt Date: 20210622
  Transmission Date: 20210717
  Serious: Yes (Hospitalization)
  Sender: FDA-Public Use
  Company Number: None

PATIENT
  Age: 77 Year
  Sex: Female
  Weight: 51.5 kg

DRUGS (1)
  1. LENALIDOMIDE (CC?5013) [Suspect]
     Active Substance: LENALIDOMIDE
     Dates: end: 20201110

REACTIONS (3)
  - Squamous cell carcinoma [None]
  - Skin mass [None]
  - Skin ulcer [None]

NARRATIVE: CASE EVENT DATE: 20201110
